FAERS Safety Report 9345599 (Version 1)
Quarter: 2013Q2

REPORT INFORMATION
  Report Type: Spontaneous
  Country: US (occurrence: US)
  Receive Date: 20130613
  Receipt Date: 20130613
  Transmission Date: 20140414
  Serious: No
  Sender: FDA-Public Use
  Company Number: US-TEVA-410595USA

PATIENT
  Sex: Female
  Weight: 88.53 kg

DRUGS (16)
  1. NUVIGIL [Suspect]
     Indication: FATIGUE
     Dosage: 250 MILLIGRAM DAILY; IN THE MORNING
     Route: 048
  2. NUVIGIL [Suspect]
     Indication: BIPOLAR DISORDER
     Dosage: 125 MILLIGRAM DAILY; AT 4PM
     Route: 048
  3. FOLIC ACID [Concomitant]
     Indication: HYPERHOMOCYSTEINAEMIA
     Dosage: 5 MILLIGRAM DAILY;
     Route: 048
  4. B12 [Concomitant]
     Indication: VITAMIN B12 DECREASED
     Route: 058
  5. LOVASTATIN [Concomitant]
     Indication: HYPERCHOLESTEROLAEMIA
     Dosage: 80 MILLIGRAM DAILY;
  6. CLONAZEPAM [Concomitant]
     Indication: INSOMNIA
     Dosage: 2 MILLIGRAM DAILY;
  7. IMITREX [Concomitant]
     Indication: MIGRAINE
     Dosage: 25-100MG PRN
     Route: 048
  8. OLANZAPINE [Concomitant]
     Indication: BIPOLAR DISORDER
     Dosage: 2.5 MILLIGRAM DAILY;
     Route: 048
  9. FLUOXETINE [Concomitant]
     Indication: BIPOLAR DISORDER
     Dosage: 40 MILLIGRAM DAILY;
     Route: 048
  10. NADOLOL [Concomitant]
     Indication: MIGRAINE
     Dosage: 40 MILLIGRAM DAILY;
     Route: 048
  11. NADOLOL [Concomitant]
     Indication: HYPERTENSION
  12. VITAMIN D [Concomitant]
     Indication: VITAMIN SUPPLEMENTATION
     Dosage: 2000 IU (INTERNATIONAL UNIT) DAILY;
     Route: 048
  13. CALCIUM [Concomitant]
     Indication: MINERAL SUPPLEMENTATION
     Dosage: 1500 MILLIGRAM DAILY;
     Route: 048
  14. LATUDA [Concomitant]
     Indication: BIPOLAR DISORDER
     Dosage: 40 MILLIGRAM DAILY;
     Route: 048
  15. METFORMIN [Concomitant]
     Indication: DIABETES MELLITUS
     Dosage: 2000 MILLIGRAM DAILY; 1000MG IN AM, 1000MG DINNER
     Route: 048
  16. METFORMIN [Concomitant]
     Dosage: 500 MILLIGRAM DAILY; 500MG AT BED
     Route: 048

REACTIONS (4)
  - Somnolence [Not Recovered/Not Resolved]
  - Incorrect dose administered [Not Recovered/Not Resolved]
  - Off label use [Unknown]
  - Hepatic steatosis [Unknown]
